FAERS Safety Report 4342887-7 (Version None)
Quarter: 2004Q2

REPORT INFORMATION
  Report Type: 
  Country: None (occurrence: None)
  Receive Date: 20040416
  Receipt Date: 20040406
  Transmission Date: 20050107
  Serious: Yes (Other)
  Sender: FDA-Public Use
  Company Number: US-JNJFOC-20031202922

PATIENT
  Age: 34 Year
  Sex: Female

DRUGS (2)
  1. TOPAMAX [Suspect]
     Indication: BIPOLAR DISORDER
     Dosage: 50 MG, IN 1 DAY, ORAL
     Route: 048
     Dates: start: 20031120, end: 20031128
  2. TOPAMAX [Suspect]
     Indication: OVERWEIGHT
     Dosage: 50 MG, IN 1 DAY, ORAL
     Route: 048
     Dates: start: 20031120, end: 20031128

REACTIONS (4)
  - ANGLE CLOSURE GLAUCOMA [None]
  - BLINDNESS [None]
  - DRUG HYPERSENSITIVITY [None]
  - SOMNOLENCE [None]
